FAERS Safety Report 12233966 (Version 1)
Quarter: 2016Q2

REPORT INFORMATION
  Report Type: Spontaneous
  Country: US (occurrence: None)
  Receive Date: 20160401
  Receipt Date: 20160401
  Transmission Date: 20160815
  Serious: Yes (Disabling)
  Sender: FDA-Public Use
  Company Number: None

PATIENT
  Age: 41 Year
  Sex: Female
  Weight: 80.29 kg

DRUGS (14)
  1. AZELASTINE HCL [Suspect]
     Active Substance: AZELASTINE HYDROCHLORIDE
     Indication: MULTIPLE ALLERGIES
     Dosage: TWICE A DAY SPRAYED INTO NOSE
     Route: 045
     Dates: start: 20160322, end: 20160329
  2. LANSOPRAZOLE. [Concomitant]
     Active Substance: LANSOPRAZOLE
  3. METOPROLOL. [Concomitant]
     Active Substance: METOPROLOL
  4. AMLODIPINE BESYLAYE [Concomitant]
  5. GILDESS FE [Concomitant]
     Active Substance: ETHINYL ESTRADIOL\NORETHINDRONE
  6. ALBUTEROL. [Concomitant]
     Active Substance: ALBUTEROL
  7. AZELASTINE HCL [Suspect]
     Active Substance: AZELASTINE HYDROCHLORIDE
     Indication: CHRONIC SINUSITIS
     Dosage: TWICE A DAY SPRAYED INTO NOSE
     Route: 045
     Dates: start: 20160322, end: 20160329
  8. SPIRONOLACTONE. [Concomitant]
     Active Substance: SPIRONOLACTONE
  9. SINGULAIR [Concomitant]
     Active Substance: MONTELUKAST SODIUM
  10. RANITIDINE. [Concomitant]
     Active Substance: RANITIDINE
  11. LOSARTAN. [Concomitant]
     Active Substance: LOSARTAN
  12. ALLEGRA ADVAIR [Concomitant]
  13. BIRTH CONTROL [Concomitant]
     Active Substance: UNSPECIFIED INGREDIENT
  14. CLINDAMYCIN [Concomitant]
     Active Substance: CLINDAMYCIN\CLINDAMYCIN PHOSPHATE

REACTIONS (4)
  - Skin disorder [None]
  - Skin exfoliation [None]
  - Erythema [None]
  - Pain of skin [None]

NARRATIVE: CASE EVENT DATE: 20160329
